FAERS Safety Report 5830398-9 (Version None)
Quarter: 2008Q3

REPORT INFORMATION
  Report Type: 
  Country: None (occurrence: None)
  Receive Date: 20080801
  Receipt Date: 20080724
  Transmission Date: 20090109
  Serious: Yes (Other)
  Sender: FDA-Public Use
  Company Number: US-AMGEN-QUU296879

PATIENT
  Sex: Female

DRUGS (13)
  1. ENBREL [Suspect]
     Indication: PSORIASIS
     Dates: start: 20080715, end: 20080721
  2. MOBIC [Concomitant]
  3. MULTI-VITAMINS [Concomitant]
  4. LEVOXYL [Concomitant]
  5. GEODON [Concomitant]
  6. LUVOX [Concomitant]
  7. TEGRETOL [Concomitant]
  8. ASPIRIN [Concomitant]
  9. ABILIFY [Concomitant]
  10. ZANTAC [Concomitant]
  11. SINGULAIR [Concomitant]
  12. VALIUM [Concomitant]
  13. DIAMOX SRC [Concomitant]

REACTIONS (4)
  - BIPOLAR DISORDER [None]
  - DEPRESSION [None]
  - MOOD ALTERED [None]
  - PREMENSTRUAL SYNDROME [None]
